FAERS Safety Report 8221117-X (Version None)
Quarter: 2012Q1

REPORT INFORMATION
  Report Type: 
  Country: None (occurrence: None)
  Receive Date: 20120320
  Receipt Date: 20120306
  Transmission Date: 20120608
  Serious: Yes (Other)
  Sender: FDA-Public Use
  Company Number: FR-VALEANT-2012VX001137

PATIENT
  Sex: Female

DRUGS (9)
  1. CYCLOPHOSPHAMIDE [Suspect]
     Indication: BREAST CANCER
     Dosage: DOSE UNIT:200
     Route: 065
  2. THERAPEUTIC RADIOPHARMACEUTICALS [Suspect]
     Indication: BREAST CANCER
     Route: 065
  3. FLUOROURACIL [Suspect]
     Dosage: DOSE UNIT:1500
     Route: 065
  4. EPIRUBICIN [Suspect]
     Indication: BREAST CANCER
     Route: 065
  5. DOXORUBICIN HCL [Suspect]
     Indication: BREAST CANCER
     Dosage: DOSE UNIT:50
     Route: 065
  6. METHOTREXATE [Suspect]
     Indication: BREAST CANCER
     Dosage: DOSE UNIT:10
     Route: 065
  7. VINCRISTINE SULFATE [Suspect]
     Indication: BREAST CANCER
     Dosage: DOSE UNIT:0.6
     Route: 065
  8. CYCLOPHOSPHAMIDE [Suspect]
     Dosage: DOSE UNIT:500
     Route: 065
  9. FLUOROURACIL [Suspect]
     Indication: BREAST CANCER
     Dosage: DOSE UNIT:300
     Route: 065

REACTIONS (1)
  - CARDIOTOXICITY [None]
